FAERS Safety Report 9190791 (Version 1)
Quarter: 2013Q1

REPORT INFORMATION
  Report Type: Spontaneous
  Country: US (occurrence: US)
  Receive Date: 20130326
  Receipt Date: 20130326
  Transmission Date: 20140127
  Serious: Yes (Other)
  Sender: FDA-Public Use
  Company Number: US-ROCHE-1202331

PATIENT
  Age: 59 Year
  Sex: Female
  Weight: 79.45 kg

DRUGS (22)
  1. ACTEMRA [Suspect]
     Indication: RHEUMATOID ARTHRITIS
     Route: 042
     Dates: start: 20121005
  2. ACTEMRA [Suspect]
     Route: 042
     Dates: start: 20121106
  3. ACTEMRA [Suspect]
     Route: 042
     Dates: start: 20121204
  4. ACTEMRA [Suspect]
     Route: 042
     Dates: start: 20130103
  5. ACTEMRA [Suspect]
     Route: 042
     Dates: start: 20130129
  6. ACTEMRA [Suspect]
     Dosage: OR 720 MG
     Route: 042
     Dates: start: 20130226
  7. METHOTREXATE [Concomitant]
     Route: 048
  8. METHOTREXATE [Concomitant]
     Route: 030
  9. ETODOLAC [Concomitant]
     Route: 048
  10. FORTEO [Concomitant]
     Dosage: 600 MCG/2.4 ML
     Route: 065
  11. LOVASTATIN [Concomitant]
     Route: 065
  12. PANTOPRAZOLE SODIUM [Concomitant]
     Route: 065
  13. ATENOLOL [Concomitant]
     Route: 065
  14. SINGULAIR [Concomitant]
     Route: 065
  15. FOLIC ACID [Concomitant]
     Route: 065
  16. LOSARTAN [Concomitant]
     Route: 065
  17. VITAMIN D2 [Concomitant]
     Dosage: 50,000 UNIT
     Route: 065
  18. LOMOTIL [Concomitant]
     Route: 065
  19. CYMBALTA [Concomitant]
     Dosage: WEANED OFF ON 29/JAN/2013
     Route: 065
  20. TIZANIDINE [Concomitant]
     Dosage: 2 HS FOR REACTION TO ORENCIA
     Route: 065
  21. PROTONIX [Concomitant]
  22. LORTAB [Concomitant]

REACTIONS (7)
  - Aspartate aminotransferase increased [Not Recovered/Not Resolved]
  - Alanine aminotransferase increased [Not Recovered/Not Resolved]
  - Headache [Not Recovered/Not Resolved]
  - Dizziness [Not Recovered/Not Resolved]
  - Pruritus [Not Recovered/Not Resolved]
  - Hyperhidrosis [Not Recovered/Not Resolved]
  - Contusion [Not Recovered/Not Resolved]
